FAERS Safety Report 24630125 (Version 2)
Quarter: 2025Q2

REPORT INFORMATION
  Report Type: Spontaneous
  Country: CA (occurrence: CA)
  Receive Date: 20241118
  Receipt Date: 20250410
  Transmission Date: 20250716
  Serious: Yes (Death, Other)
  Sender: HIKMA
  Company Number: CA-HIKMA PHARMACEUTICALS USA INC.-CA-H14001-24-10433

PATIENT
  Age: 46 Year
  Sex: Male

DRUGS (3)
  1. CAFFEINE [Suspect]
     Active Substance: CAFFEINE
     Indication: Product used for unknown indication
     Route: 065
  2. NALOXONE [Suspect]
     Active Substance: NALOXONE
  3. NARCAN [Suspect]
     Active Substance: NALOXONE HYDROCHLORIDE
     Indication: Product used for unknown indication
     Route: 065

REACTIONS (2)
  - Alcohol poisoning [Fatal]
  - Toxicity to various agents [Fatal]
